FAERS Safety Report 15558156 (Version 2)
Quarter: 2018Q4

REPORT INFORMATION
  Report Type: Spontaneous
  Country: CA (occurrence: CA)
  Receive Date: 20181027
  Receipt Date: 20181211
  Transmission Date: 20190205
  Serious: Yes (Other)
  Sender: FDA-Public Use
  Company Number: CA-009507513-1512CAN010763

PATIENT
  Age: 72 Year
  Sex: Female

DRUGS (1)
  1. MAXALT [Suspect]
     Active Substance: RIZATRIPTAN BENZOATE
     Indication: MIGRAINE
     Dosage: 1 TABLET AT FIRST SIGN OF HEADACHE, MAY TAKE ANOTHER AFTER 2 HRS. NO MORE THAN/ UP TO  2 TABLET PER
     Route: 048
     Dates: start: 201602

REACTIONS (11)
  - Drug ineffective [Unknown]
  - Abdominal pain [Unknown]
  - Malaise [Unknown]
  - Migraine [Not Recovered/Not Resolved]
  - Cystitis [Unknown]
  - Drug effect incomplete [Unknown]
  - Headache [Not Recovered/Not Resolved]
  - Disability [Unknown]
  - Sinusitis [Not Recovered/Not Resolved]
  - Pain [Unknown]
  - Lower respiratory tract infection [Not Recovered/Not Resolved]

NARRATIVE: CASE EVENT DATE: 20160207
